FAERS Safety Report 7881876-2 (Version None)
Quarter: 2011Q4

REPORT INFORMATION
  Report Type: 
  Country: None (occurrence: None)
  Receive Date: 20111101
  Receipt Date: 20110602
  Transmission Date: 20120403
  Serious: Yes (Other)
  Sender: FDA-Public Use
  Company Number: US-AMGEN-USASP2011028552

PATIENT
  Sex: Female

DRUGS (3)
  1. ENBREL [Suspect]
     Indication: PSORIASIS
  2. ENBREL [Suspect]
     Indication: PSORIATIC ARTHROPATHY
     Dosage: 50 MG, 2 TIMES/WK
     Dates: start: 20030701
  3. HUMIRA [Concomitant]
     Dosage: UNK
     Dates: start: 20091101, end: 20110401

REACTIONS (4)
  - CARDIAC FAILURE CONGESTIVE [None]
  - PSORIASIS [None]
  - FATIGUE [None]
  - DRUG INEFFECTIVE [None]
